FAERS Safety Report 11024899 (Version 1)
Quarter: 2015Q2

REPORT INFORMATION
  Report Type: Spontaneous
  Country: US (occurrence: US)
  Receive Date: 20150414
  Receipt Date: 20150414
  Transmission Date: 20150821
  Serious: No
  Sender: FDA-Public Use
  Company Number: US-BIOGENIDEC-2015BI027062

PATIENT
  Age: 61 Year
  Sex: Female

DRUGS (1)
  1. AVONEX [Suspect]
     Active Substance: INTERFERON BETA-1A
     Indication: MULTIPLE SCLEROSIS
     Route: 030
     Dates: start: 19991001, end: 20150217

REACTIONS (12)
  - Gait disturbance [Unknown]
  - Dyspnoea [Unknown]
  - Pancreatitis [Unknown]
  - Dysphagia [Unknown]
  - Abdominal pain upper [Not Recovered/Not Resolved]
  - Weight decreased [Unknown]
  - Fear [Unknown]
  - Fatigue [Unknown]
  - Depressed mood [Unknown]
  - Nervousness [Unknown]
  - Haematological malignancy [Unknown]
  - Therapy cessation [Recovered/Resolved]

NARRATIVE: CASE EVENT DATE: 2014
